FAERS Safety Report 18727891 (Version 2)
Quarter: 2022Q2

REPORT INFORMATION
  Report Type: Spontaneous
  Country: US (occurrence: US)
  Receive Date: 20210111
  Receipt Date: 20220406
  Transmission Date: 20220721
  Serious: No
  Sender: FDA-Public Use
  Company Number: US-PFIZER INC-2021015227

PATIENT
  Age: 69 Year
  Sex: Female
  Weight: 90.703 kg

DRUGS (2)
  1. IBRANCE [Suspect]
     Active Substance: PALBOCICLIB
     Indication: Breast cancer female
     Dosage: 75 MG, CYCLIC (21 DAYS ON, 7 DAYS OFF)
     Dates: end: 20210728
  2. IBRANCE [Suspect]
     Active Substance: PALBOCICLIB
     Indication: Invasive lobular breast carcinoma

REACTIONS (6)
  - Dehydration [Unknown]
  - Eating disorder [Unknown]
  - COVID-19 [Unknown]
  - White blood cell count decreased [Unknown]
  - Fatigue [Unknown]
  - Cough [Unknown]
